FAERS Safety Report 4503853-1 (Version None)
Quarter: 2004Q4

REPORT INFORMATION
  Report Type: 
  Country: None (occurrence: None)
  Receive Date: 20041115
  Receipt Date: 20041109
  Transmission Date: 20050328
  Serious: Yes (Hospitalization)
  Sender: FDA-Public Use
  Company Number: 2004-11-0444

PATIENT
  Age: 46 Year
  Sex: Female

DRUGS (2)
  1. TEMODAL [Suspect]
     Indication: GLIOMA
     Dosage: 75 MG/M^2 ORAL
     Route: 048
  2. RADIATION THERAPY NO DOSE FORM [Suspect]
     Indication: GLIOMA

REACTIONS (1)
  - DEEP VEIN THROMBOSIS [None]
